FAERS Safety Report 7680429-9 (Version None)
Quarter: 2011Q3

REPORT INFORMATION
  Report Type: 
  Country: None (occurrence: None)
  Receive Date: 20110812
  Receipt Date: 20110811
  Transmission Date: 20111222
  Serious: Yes (Other)
  Sender: FDA-Public Use
  Company Number: US-PFIZER INC-2011170751

PATIENT
  Sex: Female

DRUGS (4)
  1. ALPRAZOLAM [Suspect]
     Dosage: UNK
  2. XANAX [Suspect]
     Dosage: UNK
  3. ALPRAZOLAM [Suspect]
     Dosage: UNK
  4. ALPRAZOLAM [Suspect]
     Dosage: UNK

REACTIONS (5)
  - RASH [None]
  - DEPRESSION [None]
  - DRUG HYPERSENSITIVITY [None]
  - NEOPLASM MALIGNANT [None]
  - PRURITUS [None]
